FAERS Safety Report 13036430 (Version 1)
Quarter: 2016Q4

REPORT INFORMATION
  Report Type: Spontaneous
  Country: US (occurrence: US)
  Receive Date: 20161216
  Receipt Date: 20161216
  Transmission Date: 20170207
  Serious: No
  Sender: FDA-Public Use
  Company Number: US-009507513-1611USA009975

PATIENT
  Age: 73 Year
  Sex: Male

DRUGS (4)
  1. DEXAMETHASONE. [Concomitant]
     Active Substance: DEXAMETHASONE
     Dosage: UNK, QPM, IN THE LEFT EYE
     Route: 047
  2. TIMOLOL MALEATE. [Concomitant]
     Active Substance: TIMOLOL MALEATE
     Dosage: UNK, BID, IN THE RIGHT EYE
     Route: 047
  3. INTRON A [Suspect]
     Active Substance: INTERFERON ALFA-2B
     Indication: SQUAMOUS CELL CARCINOMA
     Dosage: 1 MILLION UNITS/ML, 4 TIMES A DAY
     Route: 047
  4. ACETAZOLAMIDE. [Concomitant]
     Active Substance: ACETAZOLAMIDE
     Dosage: 500 MG, BID
     Route: 048

REACTIONS (1)
  - Product use issue [Unknown]
